FAERS Safety Report 9015425 (Version 3)
Quarter: 2013Q2

REPORT INFORMATION
  Report Type: Spontaneous
  Country: US (occurrence: US)
  Receive Date: 20130116
  Receipt Date: 20130603
  Transmission Date: 20140414
  Serious: Yes (Hospitalization, Other)
  Sender: FDA-Public Use
  Company Number: US-ELI_LILLY_AND_COMPANY-US201301002668

PATIENT
  Age: 83 Year
  Sex: Female
  Weight: 46 kg

DRUGS (9)
  1. CYMBALTA [Suspect]
     Indication: DEPRESSION
     Dosage: 30 MG, QD
     Dates: start: 20121206, end: 20121206
  2. SYNTHROID [Concomitant]
     Dosage: UNK, UNKNOWN
  3. ASA [Concomitant]
  4. ZANAFLEX [Concomitant]
     Dosage: 4 MG, UNK
  5. AMBIEN [Concomitant]
  6. CALTRATE [Concomitant]
  7. DILANTIN [Concomitant]
  8. NEURONTIN [Concomitant]
  9. SIMVASTATINE [Concomitant]

REACTIONS (3)
  - Syncope [Recovered/Resolved]
  - Cerebral atrophy [Unknown]
  - Tricuspid valve incompetence [Unknown]
